FAERS Safety Report 9509302 (Version 1)
Quarter: 2013Q3

REPORT INFORMATION
  Report Type: Spontaneous
  Country: US (occurrence: US)
  Receive Date: 20130909
  Receipt Date: 20130909
  Transmission Date: 20140515
  Serious: Yes (Other)
  Sender: FDA-Public Use
  Company Number: US-BRISTOL-MYERS SQUIBB COMPANY-17319104

PATIENT
  Sex: 0

DRUGS (1)
  1. ABILIFY TABS 15 MG [Suspect]
     Dosage: STARTED AT 5MG AND INCREASED TO 15MG

REACTIONS (1)
  - Swollen tongue [Recovered/Resolved]
